FAERS Safety Report 8372005-X (Version None)
Quarter: 2012Q2

REPORT INFORMATION
  Report Type: 
  Country: None (occurrence: None)
  Receive Date: 20120518
  Receipt Date: 20120323
  Transmission Date: 20120825
  Serious: Yes (Other)
  Sender: FDA-Public Use
  Company Number: CHPA2012US001630

PATIENT
  Age: 53 Year
  Sex: Female

DRUGS (2)
  1. EXCEDRIN TENSION HEADACHE CAPLETS [Suspect]
     Indication: MIGRAINE
     Dosage: 2 DF
     Route: 048
  2. EXCEDRIN TENSION HEADACHE CAPLETS [Suspect]
     Dosage: SOMETIMES 1 DF
     Route: 048

REACTIONS (5)
  - GASTROOESOPHAGEAL REFLUX DISEASE [None]
  - ASTHMA [None]
  - NAUSEA [None]
  - UNDERDOSE [None]
  - DRUG INEFFECTIVE [None]
